FAERS Safety Report 7607638-9 (Version None)
Quarter: 2011Q3

REPORT INFORMATION
  Report Type: 
  Country: None (occurrence: None)
  Receive Date: 20110713
  Receipt Date: 20110406
  Transmission Date: 20111222
  Serious: Yes (Other)
  Sender: FDA-Public Use
  Company Number: PHHY2011JP41958

PATIENT

DRUGS (1)
  1. RASILEZ [Suspect]
     Route: 048

REACTIONS (1)
  - INFECTIOUS DISEASE CARRIER [None]
